FAERS Safety Report 13181999 (Version 3)
Quarter: 2017Q1

REPORT INFORMATION
  Report Type: Spontaneous
  Country: US (occurrence: US)
  Receive Date: 20170202
  Receipt Date: 20170316
  Transmission Date: 20170428
  Serious: Yes (Death)
  Sender: FDA-Public Use
  Company Number: US-IMPAX LABORATORIES, INC-2016-IPXL-02477

PATIENT
  Age: 89 Year
  Sex: Male
  Weight: 64 kg

DRUGS (6)
  1. RYTARY [Suspect]
     Active Substance: CARBIDOPA\LEVODOPA
     Indication: PARKINSON^S DISEASE
     Dosage: (23.75/95) MG, 3 CAPSULES 3/DAY
     Route: 048
     Dates: start: 20161130, end: 2016
  2. LISINOPRIL. [Concomitant]
     Active Substance: LISINOPRIL
     Indication: HYPERTENSION
     Dosage: 20 MG, UNK
     Route: 065
  3. FLOMAX [Concomitant]
     Active Substance: TAMSULOSIN HYDROCHLORIDE
     Indication: POLLAKIURIA
     Dosage: 0.4 MG, 1 /DAY
     Route: 065
  4. TAMSULOSIN [Concomitant]
     Active Substance: TAMSULOSIN
     Indication: POLLAKIURIA
     Dosage: 0.4 MG, UNK
     Route: 065
  5. RYTARY [Suspect]
     Active Substance: CARBIDOPA\LEVODOPA
     Dosage: (23.75/95) MG 2 CAPSULES, 4 /DAY
     Route: 048
     Dates: start: 2016
  6. BENAZEPRIL [Concomitant]
     Active Substance: BENAZEPRIL HYDROCHLORIDE
     Indication: HYPERTENSION
     Dosage: 20 MG, 1 /DAY
     Route: 065

REACTIONS (6)
  - Poor quality sleep [Unknown]
  - Weight decreased [Not Recovered/Not Resolved]
  - Unevaluable event [Fatal]
  - Tremor [Not Recovered/Not Resolved]
  - Urinary tract infection [Not Recovered/Not Resolved]
  - Feeling hot [Not Recovered/Not Resolved]

NARRATIVE: CASE EVENT DATE: 2016
